FAERS Safety Report 17993971 (Version 1)
Quarter: 2020Q3

REPORT INFORMATION
  Report Type: Spontaneous
  Country: US (occurrence: US)
  Receive Date: 20200707
  Receipt Date: 20200707
  Transmission Date: 20201103
  Serious: Yes (Disabling)
  Sender: FDA-Public Use
  Company Number: None

PATIENT
  Age: 60 Year
  Sex: Female
  Weight: 56.25 kg

DRUGS (14)
  1. MELATONIN [Concomitant]
     Active Substance: MELATONIN
  2. MACROBID [Concomitant]
     Active Substance: NITROFURANTOIN\NITROFURANTOIN MONOHYDRATE
  3. SULFASALAZINE. [Concomitant]
     Active Substance: SULFASALAZINE
  4. NAC [Concomitant]
  5. TIZANADINE [Concomitant]
     Active Substance: TIZANIDINE
  6. VITAMIN B COMPLEX [Concomitant]
     Active Substance: CYANOCOBALAMIN\DEXPANTHENOL\NIACINAMIDE\PYRIDOXINE HYDROCHLORIDE\RIBOFLAVIN 5^-PHOSPHATE SODIUM\THIAMINE HYDROCHLORIDE\VITAMIN B COMPLEX
  7. MOTEGRITY [Suspect]
     Active Substance: PRUCALOPRIDE SUCCINATE
     Indication: GASTROINTESTINAL HYPOMOTILITY
     Dosage: ?          QUANTITY:30 TABLET(S);?
     Route: 048
     Dates: start: 20200706, end: 20200706
  8. VALIUM [Concomitant]
     Active Substance: DIAZEPAM
  9. MAGNESIUM [Concomitant]
     Active Substance: MAGNESIUM
  10. IBUPROFEN. [Concomitant]
     Active Substance: IBUPROFEN
  11. TAMULOSIN [Concomitant]
     Active Substance: TAMSULOSIN
  12. CRANBERRY. [Concomitant]
     Active Substance: CRANBERRY
  13. PREDNISONE. [Concomitant]
     Active Substance: PREDNISONE
  14. OMEGA [Concomitant]

REACTIONS (9)
  - Diarrhoea [None]
  - Ear discomfort [None]
  - Vomiting [None]
  - Withdrawal syndrome [None]
  - Facial pain [None]
  - Dizziness [None]
  - Headache [None]
  - Insomnia [None]
  - Neck pain [None]

NARRATIVE: CASE EVENT DATE: 20200706
